FAERS Safety Report 16200744 (Version 1)
Quarter: 2019Q2

REPORT INFORMATION
  Report Type: Spontaneous
  Country: US (occurrence: US)
  Receive Date: 20190416
  Receipt Date: 20190416
  Transmission Date: 20190711
  Serious: No
  Sender: FDA-Public Use
  Company Number: US-BION-007524

PATIENT
  Age: 70 Year
  Sex: Female

DRUGS (3)
  1. ALEVE [Suspect]
     Active Substance: NAPROXEN SODIUM
     Indication: PAIN
     Route: 048
     Dates: start: 2018, end: 2018
  2. TYLENOL [Concomitant]
     Active Substance: ACETAMINOPHEN
     Indication: PAIN
     Route: 048
  3. DIPHENHYDRAMINE HYDROCHLORIDE/PARACETAMOL [Concomitant]
     Indication: PAIN
     Dosage: 1 TABLESPOON
     Route: 048

REACTIONS (6)
  - Urticaria [Recovering/Resolving]
  - Burning sensation [Recovered/Resolved]
  - Product size issue [Not Recovered/Not Resolved]
  - Erythema [Not Recovered/Not Resolved]
  - Pruritus [Recovered/Resolved]
  - Blister [Unknown]

NARRATIVE: CASE EVENT DATE: 2018
